FAERS Safety Report 22001116 (Version 1)
Quarter: 2023Q1

REPORT INFORMATION
  Report Type: Spontaneous
  Country: US (occurrence: None)
  Receive Date: 20230214
  Receipt Date: 20230214
  Transmission Date: 20230418
  Serious: Yes (Hospitalization)
  Sender: FDA-Public Use
  Company Number: None

PATIENT
  Sex: Female
  Weight: 82.55 kg

DRUGS (5)
  1. KISQALI [Suspect]
     Active Substance: RIBOCICLIB
     Indication: Breast cancer female
     Dosage: FREQUENCY : DAILY;?OTHER ROUTE : ORAL 21 DAYS ON, 7D OFF;?
     Route: 050
  2. CALCIUM [Concomitant]
     Active Substance: CALCIUM
  3. NAPROXEN [Concomitant]
     Active Substance: NAPROXEN
  4. POTASSIUM [Concomitant]
     Active Substance: POTASSIUM
  5. VERZENIO [Concomitant]
     Active Substance: ABEMACICLIB

REACTIONS (1)
  - Hospitalisation [None]
